FAERS Safety Report 6445891-8 (Version None)
Quarter: 2009Q4

REPORT INFORMATION
  Report Type: 
  Country: None (occurrence: None)
  Receive Date: 20091119
  Receipt Date: 20081007
  Transmission Date: 20100525
  Serious: No
  Sender: FDA-Public Use
  Company Number: A0750824A

PATIENT
  Age: 46 Year
  Sex: Female

DRUGS (4)
  1. WELLBUTRIN SR [Suspect]
     Indication: BIPOLAR DISORDER
     Dosage: 150MG PER DAY
     Route: 048
     Dates: start: 20070718
  2. LITHIUM CARBONATE [Concomitant]
  3. SYNTHROID [Concomitant]
  4. TRAMADOL HCL [Concomitant]

REACTIONS (7)
  - BLOOD PRESSURE INCREASED [None]
  - FATIGUE [None]
  - HEADACHE [None]
  - INFLUENZA LIKE ILLNESS [None]
  - MIGRAINE [None]
  - NAUSEA [None]
  - PYREXIA [None]
